FAERS Safety Report 18271214 (Version 1)
Quarter: 2020Q3

REPORT INFORMATION
  Report Type: Spontaneous
  Country: CA (occurrence: CA)
  Receive Date: 20200915
  Receipt Date: 20200915
  Transmission Date: 20201103
  Serious: Yes (Hospitalization)
  Sender: FDA-Public Use
  Company Number: CA-HLS-202001482

PATIENT
  Age: 82 Year
  Sex: Female

DRUGS (14)
  1. AMLODIPINE [Concomitant]
     Active Substance: AMLODIPINE BESYLATE
     Route: 065
  2. CALCIUM CARBONATE CO [Concomitant]
     Dosage: NOT SPECIFIED
     Route: 065
  3. ASA [Concomitant]
     Active Substance: ASPIRIN
     Route: 065
  4. VITAMIN D [Concomitant]
     Active Substance: VITAMIN D NOS
     Dosage: NOT SPECIFIED
     Route: 065
  5. MYRBETRIQ [Concomitant]
     Active Substance: MIRABEGRON
     Dosage: TABLET (EXTENDED?RELEASE)
     Route: 065
  6. LEVOTHYROXINE. [Concomitant]
     Active Substance: LEVOTHYROXINE
     Dosage: NOT SPECIFIED
     Route: 065
  7. QUETIAPINE. [Suspect]
     Active Substance: QUETIAPINE
     Route: 048
  8. CLOZARIL [Suspect]
     Active Substance: CLOZAPINE
     Indication: COGNITIVE DISORDER
     Route: 065
  9. CLOZARIL [Suspect]
     Active Substance: CLOZAPINE
     Indication: PSYCHOTIC DISORDER
     Route: 048
  10. PERINDOPRIL [Concomitant]
     Active Substance: PERINDOPRIL
     Dosage: NOT SPECIFIED
     Route: 065
  11. CLOZARIL [Suspect]
     Active Substance: CLOZAPINE
     Indication: COGNITIVE DISORDER
     Route: 048
  12. QUETIAPINE. [Concomitant]
     Active Substance: QUETIAPINE
     Route: 065
  13. CLOZARIL [Suspect]
     Active Substance: CLOZAPINE
     Indication: PSYCHOTIC DISORDER
     Route: 065
  14. CENTRUM FORTE [Concomitant]
     Route: 065

REACTIONS (5)
  - Haemoglobin decreased [Not Recovered/Not Resolved]
  - Pancytopenia [Not Recovered/Not Resolved]
  - Platelet count decreased [Not Recovered/Not Resolved]
  - White blood cell count decreased [Not Recovered/Not Resolved]
  - Neutrophil count decreased [Not Recovered/Not Resolved]
